FAERS Safety Report 4645693-9 (Version None)
Quarter: 2005Q2

REPORT INFORMATION
  Report Type: 
  Country: None (occurrence: None)
  Receive Date: 20050331
  Receipt Date: 20050224
  Transmission Date: 20051028
  Serious: No
  Sender: FDA-Public Use
  Company Number: 05P-163-0291898-00

PATIENT
  Age: 67 Year
  Sex: Male
  Weight: 74.8435 kg

DRUGS (6)
  1. HUMIRA [Suspect]
     Indication: RHEUMATOID ARTHRITIS
     Dosage: 40 MG, 1 IN 2 WK, SUBCUTANEOUS
     Route: 058
     Dates: start: 20040701
  2. CARBAMAZEPINE [Concomitant]
  3. METHOTREXATE SODIUM [Concomitant]
  4. FORTEO [Concomitant]
  5. FOLIC ACID [Concomitant]
  6. VITAMINS [Concomitant]

REACTIONS (3)
  - CONDITION AGGRAVATED [None]
  - DRUG LEVEL DECREASED [None]
  - FACIAL PAIN [None]
